FAERS Safety Report 4340128-8 (Version None)
Quarter: 2004Q2

REPORT INFORMATION
  Report Type: 
  Country: None (occurrence: None)
  Receive Date: 20040416
  Receipt Date: 20040416
  Transmission Date: 20050107
  Serious: Yes (Life-Threatening, Hospitalization)
  Sender: FDA-Public Use
  Company Number: None

PATIENT
  Age: 31 Year
  Sex: Male
  Weight: 83.9154 kg

DRUGS (3)
  1. ZYRTEC [Suspect]
     Dosage: SEE IMAGE
     Route: 048
     Dates: start: 20010601, end: 20010901
  2. ZYRTEC [Suspect]
     Dosage: SEE IMAGE
     Route: 048
     Dates: start: 20010902, end: 20010910
  3. . [Concomitant]

REACTIONS (28)
  - ABDOMINAL PAIN [None]
  - ARTHRITIS [None]
  - BURNING SENSATION [None]
  - DIARRHOEA [None]
  - DISEASE RECURRENCE [None]
  - FATIGUE [None]
  - FEELING ABNORMAL [None]
  - FIBROMYALGIA [None]
  - FLUSHING [None]
  - HEADACHE [None]
  - HEART RATE INCREASED [None]
  - HYPERSENSITIVITY [None]
  - HYPERTENSION [None]
  - INFLUENZA LIKE ILLNESS [None]
  - LUPUS-LIKE SYNDROME [None]
  - LYMPH NODE PAIN [None]
  - MUSCLE TWITCHING [None]
  - MYALGIA [None]
  - NERVOUS SYSTEM DISORDER [None]
  - NERVOUSNESS [None]
  - NEURALGIA [None]
  - PAIN [None]
  - PALPITATIONS [None]
  - PARAESTHESIA [None]
  - PLEURITIC PAIN [None]
  - SLEEP DISORDER [None]
  - STOMATITIS [None]
  - WEIGHT DECREASED [None]
